FAERS Safety Report 10710484 (Version 1)
Quarter: 2015Q1

REPORT INFORMATION
  Report Type: Spontaneous
  Country: US (occurrence: US)
  Receive Date: 20150114
  Receipt Date: 20150114
  Transmission Date: 20150721
  Serious: Yes (Other)
  Sender: FDA-Public Use
  Company Number: US-JNJFOC-20150102476

PATIENT
  Age: 77 Year
  Sex: Male
  Weight: 81.65 kg

DRUGS (7)
  1. XARELTO [Suspect]
     Active Substance: RIVAROXABAN
     Indication: ATRIAL FIBRILLATION
     Route: 048
     Dates: start: 20120327, end: 20140701
  2. ALLOPURINOL. [Concomitant]
     Active Substance: ALLOPURINOL
     Route: 065
  3. PRILOSEC [Concomitant]
     Active Substance: OMEPRAZOLE MAGNESIUM
     Route: 065
  4. COLCRYS [Concomitant]
     Active Substance: COLCHICINE
     Route: 065
  5. XARELTO [Suspect]
     Active Substance: RIVAROXABAN
     Indication: ATRIAL FLUTTER
     Route: 048
     Dates: start: 20120327, end: 20140701
  6. AMIODARONE [Concomitant]
     Active Substance: AMIODARONE
     Route: 065
  7. XARELTO [Suspect]
     Active Substance: RIVAROXABAN
     Indication: CEREBROVASCULAR ACCIDENT PROPHYLAXIS
     Route: 048
     Dates: start: 20120327, end: 20140701

REACTIONS (3)
  - Tremor [Recovered/Resolved]
  - Ataxia [Recovered/Resolved]
  - Intracranial aneurysm [Unknown]

NARRATIVE: CASE EVENT DATE: 20130919
